FAERS Safety Report 14008570 (Version 1)
Quarter: 2017Q3

REPORT INFORMATION
  Report Type: Spontaneous
  Country: FR (occurrence: FR)
  Receive Date: 20170925
  Receipt Date: 20170925
  Transmission Date: 20171128
  Serious: Yes (Hospitalization)
  Sender: FDA-Public Use
  Company Number: FR-INDIVIOR LIMITED-INDV-104691-2017

PATIENT
  Age: 29 Year
  Sex: Male

DRUGS (4)
  1. ALCOHOL. [Suspect]
     Active Substance: ALCOHOL
     Indication: PRODUCT USED FOR UNKNOWN INDICATION
     Dosage: 10 GLASSES PER DAY
     Route: 048
  2. NICOTINE. [Suspect]
     Active Substance: NICOTINE
     Indication: PRODUCT USED FOR UNKNOWN INDICATION
     Dosage: 15 PACKS/YEAR
     Route: 055
  3. SUBUTEX [Suspect]
     Active Substance: BUPRENORPHINE HYDROCHLORIDE
     Indication: PRODUCT USED FOR UNKNOWN INDICATION
     Dosage: UNK
     Route: 045
  4. DIAZEPAM. [Suspect]
     Active Substance: DIAZEPAM
     Indication: PRODUCT USED FOR UNKNOWN INDICATION
     Dosage: UNK
     Route: 048

REACTIONS (10)
  - Intentional product misuse [Not Recovered/Not Resolved]
  - Bradypnoea [Recovered/Resolved]
  - Drug dependence [Not Recovered/Not Resolved]
  - Intentional product use issue [Unknown]
  - Alveolar lung disease [Unknown]
  - Alcohol abuse [Not Recovered/Not Resolved]
  - Miosis [Recovered/Resolved]
  - Product preparation error [Unknown]
  - Disturbance in attention [Recovered/Resolved]
  - Drug abuse [Not Recovered/Not Resolved]

NARRATIVE: CASE EVENT DATE: 201707
